FAERS Safety Report 14070430 (Version 1)
Quarter: 2017Q4

REPORT INFORMATION
  Report Type: Spontaneous
  Country: None (occurrence: DE)
  Receive Date: 20171010
  Receipt Date: 20171010
  Transmission Date: 20180321
  Serious: Yes (Hospitalization, Other)
  Sender: FDA-Public Use
  Company Number: DE-MEDAC PHARMA, INC.-2029489

PATIENT
  Age: 43 Year
  Sex: Female

DRUGS (1)
  1. METHOTREXATE. [Suspect]
     Active Substance: METHOTREXATE
     Indication: RHEUMATOID ARTHRITIS
     Route: 058
     Dates: start: 201404, end: 201607

REACTIONS (4)
  - Dysuria [Recovering/Resolving]
  - Paraesthesia [Recovering/Resolving]
  - Dizziness [Unknown]
  - Postural orthostatic tachycardia syndrome [Recovered/Resolved with Sequelae]

NARRATIVE: CASE EVENT DATE: 201607
